FAERS Safety Report 9584960 (Version 1)
Quarter: 2013Q4

REPORT INFORMATION
  Report Type: Spontaneous
  Country: US (occurrence: US)
  Receive Date: 20131002
  Receipt Date: 20131002
  Transmission Date: 20140711
  Serious: No
  Sender: FDA-Public Use
  Company Number: US-AMGEN-USASP2013056670

PATIENT
  Age: 40 Year
  Sex: Male

DRUGS (4)
  1. ENBREL [Suspect]
     Indication: PSORIASIS
     Dosage: 25 MG, 2 TIMES/WK
     Route: 058
  2. ACIPHEX [Concomitant]
     Dosage: 20 MG, UNK
  3. LEXAPRO [Concomitant]
     Dosage: UNK
  4. AZOR                               /06230801/ [Concomitant]
     Dosage: UNK

REACTIONS (1)
  - Injection site pruritus [Unknown]
